FAERS Safety Report 14368316 (Version 3)
Quarter: 2018Q3

REPORT INFORMATION
  Report Type: Spontaneous
  Country: US (occurrence: US)
  Receive Date: 20180109
  Receipt Date: 20180830
  Transmission Date: 20181010
  Serious: No
  Sender: FDA-Public Use
  Company Number: US-PFIZER INC-2018007963

PATIENT
  Age: 64 Year
  Sex: Male

DRUGS (1)
  1. EUCRISA [Suspect]
     Active Substance: CRISABOROLE
     Indication: ECZEMA
     Dosage: UNK, 2X/DAY (APPLIED TO AFFECTED AREA TWICE DAILY)
     Route: 061
     Dates: start: 20171018, end: 20171120

REACTIONS (1)
  - Drug effect incomplete [Unknown]
